FAERS Safety Report 6348039-3 (Version None)
Quarter: 2009Q3

REPORT INFORMATION
  Report Type: 
  Country: None (occurrence: None)
  Receive Date: 20090910
  Receipt Date: 20090901
  Transmission Date: 20100115
  Serious: Yes (Other)
  Sender: FDA-Public Use
  Company Number: US-B.I. PHARMACEUTICALS,INC./RIDGEFIELD-2009-BP-09784BP

PATIENT
  Sex: Male

DRUGS (7)
  1. FLOMAX [Suspect]
     Indication: BENIGN PROSTATIC HYPERPLASIA
     Dosage: 0.4 MG
  2. GLUCOPHAGE [Concomitant]
     Dosage: 2000 MG
  3. ZOLOFT [Concomitant]
     Dosage: 100 MG
  4. ZOCOR [Concomitant]
     Dosage: 20 MG
  5. ASPIRIN [Concomitant]
     Dosage: 325 MG
  6. FINASTERIDE [Concomitant]
     Dosage: 5 MG
  7. PREVIDENT FLUORIDE TOOTH PASTE [Concomitant]

REACTIONS (5)
  - DIZZINESS [None]
  - FALL [None]
  - GAIT DISTURBANCE [None]
  - IMPAIRED DRIVING ABILITY [None]
  - NAUSEA [None]
